FAERS Safety Report 12729489 (Version 1)
Quarter: 2016Q3

REPORT INFORMATION
  Report Type: Spontaneous
  Country: GB (occurrence: GB)
  Receive Date: 20160909
  Receipt Date: 20160909
  Transmission Date: 20161109
  Serious: Yes (Hospitalization)
  Sender: FDA-Public Use
  Company Number: GB-SA-2016SA161994

PATIENT
  Age: 73 Year
  Sex: Female

DRUGS (4)
  1. ATENOLOL. [Suspect]
     Active Substance: ATENOLOL
     Indication: HYPERTENSION
     Dosage: DOSE: 1 UNITS UNSPECIFIED
     Route: 065
     Dates: start: 201605
  2. INDAPAMIDE. [Suspect]
     Active Substance: INDAPAMIDE
     Indication: HYPERTENSION
     Route: 065
     Dates: start: 201511, end: 20160702
  3. ALENDRONIC ACID [Concomitant]
     Active Substance: ALENDRONIC ACID
  4. ATENOLOL. [Suspect]
     Active Substance: ATENOLOL
     Indication: HYPERTENSION
     Dosage: DOSE: 1 UNITS UNSPECIFIED
     Route: 065
     Dates: end: 201605

REACTIONS (2)
  - Swollen tongue [Recovered/Resolved]
  - Hypersensitivity [Recovered/Resolved]

NARRATIVE: CASE EVENT DATE: 20160525
